FAERS Safety Report 8234476-9 (Version None)
Quarter: 2012Q1

REPORT INFORMATION
  Report Type: 
  Country: None (occurrence: None)
  Receive Date: 20120307
  Receipt Date: 20100908
  Transmission Date: 20120608
  Serious: Yes (Death, Hospitalization)
  Sender: FDA-Public Use
  Company Number: PHHY2010US49843

PATIENT
  Age: 50 Year
  Sex: Female
  Weight: 78.9 kg

DRUGS (27)
  1. ATIVAN [Concomitant]
  2. LACTULOSE [Concomitant]
  3. GLYBURIDE [Concomitant]
  4. SUTENT [Concomitant]
  5. SODIUM CHLORIDE [Concomitant]
  6. GEMFIBROZIL [Concomitant]
  7. BACTROBAN OINTMENT (MUPIROCIN CALCIUM) [Concomitant]
  8. POTASSIUM CHLORIDE [Concomitant]
  9. TEMAZEPAM [Concomitant]
  10. VICODIN [Concomitant]
  11. OMEPRAZOLE [Concomitant]
  12. SONATA [Concomitant]
  13. DECADRON [Concomitant]
  14. ZOFRAN [Concomitant]
  15. MAGNESIUM OXIDE (MAGNESIUM OXIDE) [Concomitant]
  16. FLUCONAZOLE [Concomitant]
  17. LANTUS [Concomitant]
  18. AFINITOR [Suspect]
     Indication: RENAL CELL CARCINOMA
     Dosage: 10MG/DAY, ORAL 5 MG AND 10 MG DAILY, ORAL 15MG/DAY, ORAL
     Route: 048
     Dates: start: 20100603, end: 20100708
  19. AFINITOR [Suspect]
     Indication: RENAL CANCER
     Dosage: 10MG/DAY, ORAL 5 MG AND 10 MG DAILY, ORAL 15MG/DAY, ORAL
     Route: 048
     Dates: start: 20100603, end: 20100708
  20. AFINITOR [Suspect]
     Indication: RENAL CELL CARCINOMA
     Dosage: 10MG/DAY, ORAL 5 MG AND 10 MG DAILY, ORAL 15MG/DAY, ORAL
     Route: 048
     Dates: start: 20100511, end: 20100602
  21. AFINITOR [Suspect]
     Indication: RENAL CANCER
     Dosage: 10MG/DAY, ORAL 5 MG AND 10 MG DAILY, ORAL 15MG/DAY, ORAL
     Route: 048
     Dates: start: 20100511, end: 20100602
  22. AFINITOR [Suspect]
     Indication: RENAL CELL CARCINOMA
     Dosage: 10MG/DAY, ORAL 5 MG AND 10 MG DAILY, ORAL 15MG/DAY, ORAL
     Route: 048
     Dates: start: 20100526
  23. AFINITOR [Suspect]
     Indication: RENAL CANCER
     Dosage: 10MG/DAY, ORAL 5 MG AND 10 MG DAILY, ORAL 15MG/DAY, ORAL
     Route: 048
     Dates: start: 20100526
  24. ACETAMINOPHEN [Concomitant]
  25. COMPAZINE [Concomitant]
  26. HYDROCORTISON (HYDROCORTISONE SODIUM SUCCINATE) [Concomitant]
  27. VITAMIN D [Concomitant]

REACTIONS (5)
  - HYPOXIA [None]
  - NEOPLASM PROGRESSION [None]
  - NEOPLASM MALIGNANT [None]
  - RESPIRATORY FAILURE [None]
  - PNEUMONIA ESCHERICHIA [None]
